FAERS Safety Report 20495505 (Version 3)
Quarter: 2022Q1

REPORT INFORMATION
  Report Type: Report from Study
  Country: US (occurrence: None)
  Receive Date: 20220221
  Receipt Date: 20220328
  Transmission Date: 20220424
  Serious: Yes (Hospitalization)
  Sender: FDA-Public Use
  Company Number: US-ROCHE-3025272

PATIENT
  Age: 82 Year
  Sex: Female
  Weight: 72 kg

DRUGS (18)
  1. RANIBIZUMAB [Suspect]
     Active Substance: RANIBIZUMAB
     Indication: Age-related macular degeneration
     Dosage: DOSE: 100 MG/ML?START DATE OF MOST RECENT DOSE OF STUDY DRUG?PRIOR TO AE: 29/OCT/2021?FREQUENCY OF R
     Route: 050
     Dates: start: 20201120
  2. RANIBIZUMAB [Suspect]
     Active Substance: RANIBIZUMAB
  3. RANIBIZUMAB [Suspect]
     Active Substance: RANIBIZUMAB
  4. RANIBIZUMAB [Suspect]
     Active Substance: RANIBIZUMAB
  5. RANIBIZUMAB [Suspect]
     Active Substance: RANIBIZUMAB
  6. RANIBIZUMAB [Suspect]
     Active Substance: RANIBIZUMAB
  7. SINGULAIR [Concomitant]
     Active Substance: MONTELUKAST SODIUM
     Indication: Seasonal allergy
     Route: 048
  8. LISINOPRIL [Concomitant]
     Active Substance: LISINOPRIL
     Indication: Hypertension
     Route: 048
  9. CYMBALTA [Concomitant]
     Active Substance: DULOXETINE HYDROCHLORIDE
     Indication: Myalgia
     Route: 048
     Dates: start: 20190108
  10. ALBUTEROL [Concomitant]
     Active Substance: ALBUTEROL
     Indication: Asthma
     Route: 048
     Dates: start: 20190713
  11. BREO ELLIPTA [Concomitant]
     Active Substance: FLUTICASONE FUROATE\VILANTEROL TRIFENATATE
     Indication: Asthma
     Route: 048
     Dates: start: 20190713
  12. PREVACID [Concomitant]
     Active Substance: LANSOPRAZOLE
     Indication: Gastrooesophageal reflux disease
     Route: 048
     Dates: start: 20200306
  13. METHOTREXATE [Concomitant]
     Active Substance: METHOTREXATE
     Indication: Myalgia
     Route: 048
     Dates: start: 20210315
  14. FOLIC ACID [Concomitant]
     Active Substance: FOLIC ACID
     Indication: Myalgia
     Route: 048
     Dates: start: 20210317
  15. NAPROXEN [Concomitant]
     Active Substance: NAPROXEN
     Indication: Myalgia
     Route: 048
     Dates: start: 20201120
  16. PREDNISONE [Concomitant]
     Active Substance: PREDNISONE
     Indication: Myalgia
     Route: 048
     Dates: start: 20210731
  17. HYDROCODONE [Concomitant]
     Active Substance: HYDROCODONE
     Indication: Myalgia
     Route: 048
     Dates: start: 20190713
  18. RANIBIZUMAB [Concomitant]
     Active Substance: RANIBIZUMAB
     Indication: Age-related macular degeneration
     Dosage: DOSE: 10MG/ML?START DATE OF MOST RECENT DOSE OF STUDY DRUG?PRIOR TO SAE: 07/FEB/2022
     Route: 050
     Dates: start: 20201125

REACTIONS (1)
  - Fall [Unknown]

NARRATIVE: CASE EVENT DATE: 20220210
